FAERS Safety Report 15120564 (Version 1)
Quarter: 2018Q3

REPORT INFORMATION
  Report Type: Report from Study
  Country: IT (occurrence: IT)
  Receive Date: 20180709
  Receipt Date: 20180709
  Transmission Date: 20181010
  Serious: Yes (Other)
  Sender: FDA-Public Use
  Company Number: IT-TEVA-2018-IT-921352

PATIENT
  Age: 46 Year
  Sex: Female

DRUGS (2)
  1. PACLITAXEL. [Suspect]
     Active Substance: PACLITAXEL
     Indication: BREAST NEOPLASM
     Route: 042
     Dates: start: 20180417
  2. TRASTUZUMAB. [Concomitant]
     Active Substance: TRASTUZUMAB
     Indication: BREAST NEOPLASM
     Route: 042
     Dates: start: 20180417

REACTIONS (4)
  - Headache [Recovered/Resolved with Sequelae]
  - Throat tightness [Recovered/Resolved with Sequelae]
  - Skin burning sensation [Recovered/Resolved with Sequelae]
  - Hypersensitivity [Recovered/Resolved with Sequelae]

NARRATIVE: CASE EVENT DATE: 20180417
